FAERS Safety Report 8156694-0 (Version None)
Quarter: 2012Q1

REPORT INFORMATION
  Report Type: 
  Country: None (occurrence: None)
  Receive Date: 20120222
  Receipt Date: 20120215
  Transmission Date: 20120608
  Serious: Yes (Other)
  Sender: FDA-Public Use
  Company Number: FR-ROXANE LABORATORIES, INC.-2012-RO-00669RO

PATIENT
  Age: 14 Year

DRUGS (3)
  1. VALPROATE SODIUM [Suspect]
     Indication: PETIT MAL EPILEPSY
  2. LEVETIRACETAM [Suspect]
     Indication: PETIT MAL EPILEPSY
  3. ETHOSUXIMIDE [Suspect]
     Indication: PETIT MAL EPILEPSY

REACTIONS (1)
  - CONVULSION [None]
